FAERS Safety Report 17913692 (Version 2)
Quarter: 2020Q3

REPORT INFORMATION
  Report Type: Spontaneous
  Country: TW (occurrence: TW)
  Receive Date: 20200618
  Receipt Date: 20200623
  Transmission Date: 20201105
  Serious: Yes (Death, Other)
  Sender: FDA-Public Use
  Company Number: NVSC2020TW165699

PATIENT
  Age: 58 Year
  Sex: Female

DRUGS (15)
  1. CISPLATIN. [Suspect]
     Active Substance: CISPLATIN
     Dosage: UNK (D1,D8)
     Route: 065
     Dates: start: 20190921
  2. ALIMTA [Suspect]
     Active Substance: PEMETREXED DISODIUM
     Indication: PRODUCT USED FOR UNKNOWN INDICATION
     Dosage: UNK (X5)
     Route: 065
     Dates: start: 20151214, end: 20160608
  3. GEMCITABINE. [Suspect]
     Active Substance: GEMCITABINE
     Dosage: UNK (D1, D8)
     Route: 065
     Dates: start: 20191014
  4. GEMCITABINE. [Suspect]
     Active Substance: GEMCITABINE
     Indication: PRODUCT USED FOR UNKNOWN INDICATION
     Dosage: UNK (D1,D8)
     Route: 065
     Dates: start: 20190919
  5. CISPLATIN. [Suspect]
     Active Substance: CISPLATIN
     Indication: PRODUCT USED FOR UNKNOWN INDICATION
     Dosage: UNK  (X1 THEN X5)
     Route: 065
     Dates: start: 20151214, end: 20160608
  6. CISPLATIN. [Suspect]
     Active Substance: CISPLATIN
     Dosage: UNK (DOSE, X4)
     Route: 065
     Dates: start: 20160624, end: 20190831
  7. BEVACIZUMAB. [Suspect]
     Active Substance: BEVACIZUMAB
     Indication: PRODUCT USED FOR UNKNOWN INDICATION
     Dosage: UNK
     Route: 065
     Dates: start: 20190420
  8. ALECTINIB. [Suspect]
     Active Substance: ALECTINIB
     Indication: PRODUCT USED FOR UNKNOWN INDICATION
     Dosage: UNK (11.2 MONTHS)
     Route: 065
  9. LORLATINIB [Suspect]
     Active Substance: LORLATINIB
     Indication: PRODUCT USED FOR UNKNOWN INDICATION
     Dosage: UNK (3 WEEKS)
     Route: 065
  10. CERITINIB [Suspect]
     Active Substance: CERITINIB
     Indication: PRODUCT USED FOR UNKNOWN INDICATION
     Dosage: UNK (FOR 5.9 MONTHS)
     Route: 065
  11. TAXOTERE [Suspect]
     Active Substance: DOCETAXEL
     Indication: PRODUCT USED FOR UNKNOWN INDICATION
     Dosage: UNK (DOSE, X1 THEN X5)
     Route: 065
     Dates: start: 20151214, end: 20160608
  12. AVASTIN [Suspect]
     Active Substance: BEVACIZUMAB
     Dosage: UNK (X1)
     Route: 065
     Dates: start: 20190921
  13. PEMBROLIZUMAB. [Suspect]
     Active Substance: PEMBROLIZUMAB
     Indication: PRODUCT USED FOR UNKNOWN INDICATION
     Dosage: UNK (X4)
     Route: 065
     Dates: start: 20190624, end: 20190831
  14. TAXOTERE [Suspect]
     Active Substance: DOCETAXEL
     Dosage: UNK
     Route: 065
     Dates: start: 20190420
  15. AVASTIN [Suspect]
     Active Substance: BEVACIZUMAB
     Indication: PRODUCT USED FOR UNKNOWN INDICATION
     Dosage: UNK (X4)
     Route: 065
     Dates: start: 20190624, end: 20190831

REACTIONS (2)
  - Pleurisy [Unknown]
  - Death [Fatal]
